FAERS Safety Report 7689503-4 (Version None)
Quarter: 2011Q3

REPORT INFORMATION
  Report Type: 
  Country: None (occurrence: None)
  Receive Date: 20110817
  Receipt Date: 20110707
  Transmission Date: 20111222
  Serious: No
  Sender: FDA-Public Use
  Company Number: US-TYCO HEALTHCARE/MALLINCKRODT-T201101376

PATIENT
  Sex: Male

DRUGS (9)
  1. GLUCOPHAGE [Concomitant]
     Dosage: UNK
  2. ATENOLOL [Concomitant]
     Dosage: UNK
  3. FENTANYL-100 [Suspect]
     Indication: BACK PAIN
     Dosage: 75 MCG/HR Q48 H
     Route: 062
     Dates: start: 20110614
  4. PAXIL [Concomitant]
     Dosage: UNK
  5. MORPHINE SULFATE [Concomitant]
     Dosage: UNK
  6. FENTANYL [Concomitant]
     Dosage: 75 UG/HR, Q 48H
     Route: 062
     Dates: start: 20090101, end: 20110612
  7. ZOCOR [Concomitant]
     Dosage: UNK
  8. LISINOPRIL [Concomitant]
     Dosage: UNK
  9. REQUIP [Concomitant]
     Dosage: UNK

REACTIONS (2)
  - APPLICATION SITE PAIN [None]
  - APPLICATION SITE PRURITUS [None]
